FAERS Safety Report 6126473-4 (Version None)
Quarter: 2009Q1

REPORT INFORMATION
  Report Type: 
  Country: None (occurrence: None)
  Receive Date: 20090320
  Receipt Date: 20090309
  Transmission Date: 20090719
  Serious: Yes (Death, Other)
  Sender: FDA-Public Use
  Company Number: US-BAXTER-2008BH001578

PATIENT
  Age: 73 Year
  Sex: Female
  Weight: 65 kg

DRUGS (12)
  1. HEPARIN SODIUM INJECTION [Suspect]
     Indication: CARDIAC OPERATION
     Route: 042
     Dates: start: 20080124, end: 20080124
  2. HEPARIN SODIUM INJECTION [Suspect]
     Route: 042
     Dates: start: 20080124, end: 20080124
  3. HEPARIN SODIUM INJECTION [Suspect]
     Route: 042
     Dates: start: 20080124, end: 20080124
  4. HEPARIN SODIUM INJECTION [Suspect]
     Route: 042
     Dates: start: 20080124, end: 20080124
  5. HEPARIN SODIUM INJECTION [Suspect]
     Route: 042
     Dates: start: 20080124, end: 20080124
  6. SYNTHROID [Concomitant]
     Indication: DRUG USE FOR UNKNOWN INDICATION
     Route: 065
  7. SYNTHROID [Concomitant]
     Route: 065
  8. SERTRALINE [Concomitant]
     Indication: DRUG USE FOR UNKNOWN INDICATION
     Route: 065
  9. ZANTAC [Concomitant]
     Indication: DRUG USE FOR UNKNOWN INDICATION
     Route: 065
  10. ASPIRIN [Concomitant]
     Indication: DRUG USE FOR UNKNOWN INDICATION
     Route: 065
  11. METOPROLOL TARTRATE [Concomitant]
     Indication: DRUG USE FOR UNKNOWN INDICATION
     Route: 065
  12. PRAVASTATIN [Concomitant]
     Indication: DRUG USE FOR UNKNOWN INDICATION
     Route: 065

REACTIONS (6)
  - ARRHYTHMIA [None]
  - BLOOD PRESSURE DECREASED [None]
  - CARDIAC ARREST [None]
  - HYPOTENSION [None]
  - LEFT VENTRICULAR FAILURE [None]
  - POST PROCEDURAL COMPLICATION [None]
